FAERS Safety Report 8457439-7 (Version None)
Quarter: 2012Q2

REPORT INFORMATION
  Report Type: 
  Country: None (occurrence: None)
  Receive Date: 20120621
  Receipt Date: 20120613
  Transmission Date: 20120825
  Serious: Yes (Other)
  Sender: FDA-Public Use
  Company Number: JP-MERCK-1204USA00421

PATIENT
  Age: 70 Year
  Sex: Female
  Weight: 39 kg

DRUGS (1)
  1. FOSAMAX [Suspect]
     Route: 048
     Dates: start: 20100801, end: 20110601

REACTIONS (1)
  - TOOTH FRACTURE [None]
